FAERS Safety Report 4916717-6 (Version None)
Quarter: 2006Q1

REPORT INFORMATION
  Report Type: 
  Country: None (occurrence: None)
  Receive Date: 20060220
  Receipt Date: 20050722
  Transmission Date: 20060701
  Serious: Yes (Hospitalization)
  Sender: FDA-Public Use
  Company Number: PHBS2005BR10873

PATIENT
  Age: 1 Year
  Sex: Female

DRUGS (2)
  1. TEGRETOL [Suspect]
     Indication: EPILEPSY
     Dosage: 1.5 ML/DAY
     Route: 048
     Dates: start: 20050704
  2. TEGRETOL [Suspect]
     Dosage: 2 ML, Q8H
     Route: 048

REACTIONS (9)
  - CONVULSION [None]
  - EAR INFECTION [None]
  - HEART RATE INCREASED [None]
  - INFLUENZA [None]
  - NASOPHARYNGITIS [None]
  - PYREXIA [None]
  - SOMNOLENCE [None]
  - STARING [None]
  - TREMOR [None]
